FAERS Safety Report 5592539-0 (Version None)
Quarter: 2008Q1

REPORT INFORMATION
  Report Type: 
  Country: None (occurrence: None)
  Receive Date: 20080111
  Receipt Date: 20080103
  Transmission Date: 20080703
  Serious: Yes (Death)
  Sender: FDA-Public Use
  Company Number: B0502045A

PATIENT
  Age: 12 Year
  Sex: Male

DRUGS (6)
  1. MELPHALAN (FORMULATION UNKNOWN) (GENERIC) (MELPHALAN) [Suspect]
     Indication: ACUTE LYMPHOCYTIC LEUKAEMIA
     Dosage: 140 MG/M2 /
  2. FLUDARABINE PHOSPHATE [Suspect]
     Indication: ACUTE LYMPHOCYTIC LEUKAEMIA
     Dosage: 180 MG/M2 /
  3. TREOSULFAN (FORMULATION UNKNOWN) (TREOSULFAN) [Suspect]
     Indication: ACUTE LYMPHOCYTIC LEUKAEMIA
     Dosage: 12 G/M2 /
  4. ANTITHYMOCYTE IG (FORMULATION UNKNOWN) (ANTITHYMOCYTE IG) [Suspect]
     Indication: ACUTE LYMPHOCYTIC LEUKAEMIA
     Dosage: 60 MG/KG /
  5. CYCLOSPORINE [Suspect]
     Indication: PROPHYLAXIS AGAINST GRAFT VERSUS HOST DISEASE
  6. METHOTREXATE [Suspect]
     Indication: PROPHYLAXIS AGAINST GRAFT VERSUS HOST DISEASE
     Dosage: 7.5 MG/M2 /

REACTIONS (7)
  - ACUTE RESPIRATORY DISTRESS SYNDROME [None]
  - CAPILLARY LEAK SYNDROME [None]
  - DERMATITIS EXFOLIATIVE [None]
  - DRUG TOXICITY [None]
  - MUCOSAL INFLAMMATION [None]
  - MULTI-ORGAN FAILURE [None]
  - RENAL FAILURE [None]
